FAERS Safety Report 10043289 (Version 1)
Quarter: 2014Q1

REPORT INFORMATION
  Report Type: Spontaneous
  Country: US (occurrence: US)
  Receive Date: 20140328
  Receipt Date: 20140328
  Transmission Date: 20141002
  Serious: No
  Sender: FDA-Public Use
  Company Number: US-009507513-1403USA012397

PATIENT
  Sex: Female

DRUGS (1)
  1. LIPTRUZET [Suspect]
     Dosage: 1 DF, UNK
     Route: 048

REACTIONS (2)
  - Decreased activity [Unknown]
  - Drug dose omission [Unknown]
